FAERS Safety Report 6300690-2 (Version None)
Quarter: 2009Q3

REPORT INFORMATION
  Report Type: 
  Country: None (occurrence: None)
  Receive Date: 20090807
  Receipt Date: 20090730
  Transmission Date: 20100115
  Serious: Yes (Other)
  Sender: FDA-Public Use
  Company Number: AU-BIOGENIDEC-2009BI023847

PATIENT
  Age: 52 Year
  Sex: Male

DRUGS (3)
  1. TYSABRI [Suspect]
     Indication: RELAPSING-REMITTING MULTIPLE SCLEROSIS
     Route: 042
     Dates: start: 20080626
  2. ASTHMA MEDICATION [Concomitant]
     Indication: ASTHMA
  3. SODIUM CHLORIDE INJ [Concomitant]
     Route: 042

REACTIONS (3)
  - ANAPHYLACTIC SHOCK [None]
  - MALAISE [None]
  - RESPIRATORY TRACT INFECTION [None]
